FAERS Safety Report 10232746 (Version 2)
Quarter: 2014Q2

REPORT INFORMATION
  Report Type: Spontaneous
  Country: BR (occurrence: BR)
  Receive Date: 20140612
  Receipt Date: 20140612
  Transmission Date: 20141212
  Serious: Yes (Other)
  Sender: FDA-Public Use
  Company Number: BR-PFIZER INC-2014147159

PATIENT
  Sex: Male

DRUGS (3)
  1. VIAGRA [Suspect]
     Indication: ERECTILE DYSFUNCTION
     Dosage: 50 MG, DAILY
  2. VIAGRA [Suspect]
     Dosage: 100 MG (2X50MG) UNK
  3. VIAGRA [Suspect]
     Dosage: 50 MG, AS NEEDED

REACTIONS (5)
  - Prostate cancer recurrent [Unknown]
  - Prostatic specific antigen increased [Unknown]
  - Drug ineffective [Not Recovered/Not Resolved]
  - Pre-existing condition improved [Unknown]
  - Therapeutic response changed [Unknown]
